FAERS Safety Report 15339843 (Version 1)
Quarter: 2018Q3

REPORT INFORMATION
  Report Type: Spontaneous
  Country: US (occurrence: US)
  Receive Date: 20180831
  Receipt Date: 20180831
  Transmission Date: 20181010
  Serious: Yes (Other)
  Sender: FDA-Public Use
  Company Number: US-BRISTOL-MYERS SQUIBB COMPANY-BMS-2018-080184

PATIENT
  Age: 5 Decade
  Sex: Male

DRUGS (2)
  1. PEMBROLIZUMAB. [Suspect]
     Active Substance: PEMBROLIZUMAB
     Indication: DESMOPLASTIC MELANOMA
     Dosage: 200 MG, UNK
     Route: 065
  2. IPILIMUMAB [Suspect]
     Active Substance: IPILIMUMAB
     Indication: DESMOPLASTIC MELANOMA
     Dosage: 1 MG/KG, UNK
     Route: 065

REACTIONS (1)
  - Cutaneous vasculitis [Unknown]
